FAERS Safety Report 16907175 (Version 1)
Quarter: 2019Q4

REPORT INFORMATION
  Report Type: Spontaneous
  Country: DE (occurrence: DE)
  Receive Date: 20191011
  Receipt Date: 20191011
  Transmission Date: 20200122
  Serious: Yes (Other)
  Sender: FDA-Public Use
  Company Number: DE-TEVA-2019-DE-1121446

PATIENT
  Age: 58 Year
  Sex: Female

DRUGS (2)
  1. CLOZAPIN ABZ [Suspect]
     Active Substance: CLOZAPINE
     Dosage: 175 MILLIGRAM DAILY;
     Route: 048
     Dates: start: 201904
  2. ARIPIPRAZOL DEPOT 400MG [Suspect]
     Active Substance: ARIPIPRAZOLE
     Dates: start: 201904

REACTIONS (4)
  - Fatigue [Not Recovered/Not Resolved]
  - Hepatic enzyme increased [Not Recovered/Not Resolved]
  - Blood blister [Recovered/Resolved]
  - Hepatic enzyme abnormal [Not Recovered/Not Resolved]

NARRATIVE: CASE EVENT DATE: 201904
